FAERS Safety Report 5400996-5 (Version None)
Quarter: 2007Q3

REPORT INFORMATION
  Report Type: 
  Country: None (occurrence: None)
  Receive Date: 20070730
  Receipt Date: 20070718
  Transmission Date: 20080115
  Serious: Yes (Disabling)
  Sender: FDA-Public Use
  Company Number: US-SANOFI-SYNTHELABO-A03200703304

PATIENT
  Sex: Female

DRUGS (9)
  1. PLAVIX [Suspect]
     Indication: ANGIOPLASTY
     Route: 048
     Dates: start: 20050401
  2. PLAVIX [Suspect]
     Indication: CORONARY ARTERY OCCLUSION
     Route: 048
     Dates: start: 20050401
  3. TYLENOL ARTHRITIS [Concomitant]
     Indication: PAIN
     Dosage: EVERY 4-8 HOURS WHEN NEEDED
     Route: 048
  4. ASPIRIN [Concomitant]
     Route: 048
     Dates: start: 20050401
  5. CADUET [Concomitant]
     Dosage: 5/10 MG
     Route: 048
  6. TOPROL-XL [Concomitant]
     Route: 048
  7. LANTUS [Concomitant]
     Dosage: UNK
     Route: 058
  8. HUMALOG MIX [Concomitant]
     Dosage: 75/25 TAKEN IN THE AM AND PM
     Route: 058
  9. FUROSEMIDE [Concomitant]
     Route: 048

REACTIONS (5)
  - ARTHRALGIA [None]
  - BONE PAIN [None]
  - INSOMNIA [None]
  - MUSCULOSKELETAL PAIN [None]
  - PARALYSIS [None]
